FAERS Safety Report 7657553-X (Version None)
Quarter: 2011Q3

REPORT INFORMATION
  Report Type: 
  Country: None (occurrence: None)
  Receive Date: 20110804
  Receipt Date: 20110727
  Transmission Date: 20111222
  Serious: Yes (Other)
  Sender: FDA-Public Use
  Company Number: ES-AMGEN-ESPSP2011038725

PATIENT
  Age: 36 Year
  Sex: Female
  Weight: 58 kg

DRUGS (5)
  1. ENBREL [Suspect]
     Indication: RHEUMATOID ARTHRITIS
     Dosage: 50 MG, WEEKLY
     Route: 058
     Dates: start: 20101201, end: 20110401
  2. LARGACTIL                          /00011902/ [Concomitant]
     Indication: DEPRESSION
     Dosage: 37.5 MG, 1X/DAY
     Route: 048
  3. RANITIDINE [Concomitant]
     Indication: ABDOMINAL PAIN UPPER
     Dosage: 300 MG, AS NEEDED
     Route: 048
  4. DIAZEPAM [Concomitant]
     Indication: ANXIETY
     Dosage: 50 MG, 1X/DAY
     Route: 048
  5. VENLAFAXINE HCL [Concomitant]
     Indication: DEPRESSION
     Dosage: 150 MG, 1X/DAY
     Route: 048
     Dates: start: 20110713

REACTIONS (2)
  - WEIGHT DECREASED [None]
  - FLUSHING [None]
